FAERS Safety Report 5538434-4 (Version None)
Quarter: 2007Q4

REPORT INFORMATION
  Report Type: 
  Country: None (occurrence: None)
  Receive Date: 20071205
  Receipt Date: 20071123
  Transmission Date: 20080405
  Serious: Yes (Hospitalization)
  Sender: FDA-Public Use
  Company Number: 2007SP023832

PATIENT
  Age: 16 Year
  Sex: Female

DRUGS (9)
  1. CELESTAMINE TAB [Suspect]
     Indication: ERYTHEMA
     Dosage: 2.25 MG; TID; 2.25 MG; BID
     Dates: start: 20071115, end: 20071116
  2. CELESTAMINE TAB [Suspect]
     Indication: ERYTHEMA
     Dosage: 2.25 MG; TID; 2.25 MG; BID
     Dates: start: 20071117, end: 20071119
  3. TUSSIDANE [Concomitant]
  4. CLARAMID [Concomitant]
  5. DOLKO [Concomitant]
  6. MAGNE B6 [Concomitant]
  7. SURGAM [Concomitant]
  8. CELESTONE [Concomitant]
  9. POLARAMINE [Concomitant]

REACTIONS (15)
  - CYANOSIS [None]
  - DIZZINESS [None]
  - ERYTHEMA [None]
  - FEELING HOT [None]
  - GAIT DISTURBANCE [None]
  - HEMIPARESIS [None]
  - HOT FLUSH [None]
  - HYPOGLYCAEMIA [None]
  - MALAISE [None]
  - PARAESTHESIA [None]
  - PRURITUS [None]
  - THIRST [None]
  - THROAT IRRITATION [None]
  - TREMOR [None]
  - VERTIGO [None]
